FAERS Safety Report 8888980 (Version 1)
Quarter: 2012Q4

REPORT INFORMATION
  Report Type: 
  Country: BR (occurrence: BR)
  Receive Date: 20121106
  Receipt Date: 20121106
  Transmission Date: 20130627
  Serious: Yes (Other)
  Sender: FDA-Public Use
  Company Number: BR-ELI_LILLY_AND_COMPANY-BR201210008943

PATIENT
  Age: 67 Year
  Sex: Female

DRUGS (7)
  1. HUMULIN NPH [Suspect]
     Indication: DIABETES MELLITUS
     Dosage: 20 IU, qd
     Route: 058
     Dates: start: 20110810
  2. HUMULIN NPH [Suspect]
     Dosage: 20 IU, qd
     Route: 058
  3. METFORMINA [Concomitant]
     Dosage: UNK, unknown
     Route: 065
  4. FENOBARBITAL [Concomitant]
     Dosage: UNK, unknown
     Route: 065
  5. CARBAMAZEPINA [Concomitant]
     Dosage: UNK, unknown
     Route: 065
  6. VASOPRIL [Concomitant]
     Dosage: UNK, unknown
     Route: 065
  7. SINVASTATINA [Concomitant]
     Dosage: UNK, unknown
     Route: 065

REACTIONS (3)
  - Blood glucose increased [Recovered/Resolved]
  - Hyperglycaemia [Not Recovered/Not Resolved]
  - Hypoglycaemia [Recovered/Resolved]
